FAERS Safety Report 16286565 (Version 1)
Quarter: 2019Q2

REPORT INFORMATION
  Report Type: Spontaneous
  Country: US (occurrence: US)
  Receive Date: 20190507
  Receipt Date: 20190507
  Transmission Date: 20190711
  Serious: Yes (Hospitalization)
  Sender: FDA-Public Use
  Company Number: None

PATIENT
  Age: 92 Year
  Sex: Female

DRUGS (9)
  1. OLMESA MEDOX TABLET 40MG [Concomitant]
     Dates: start: 20171223
  2. PANTOPRAZOLE TABLET 40 MG [Concomitant]
     Dates: start: 20181031
  3. AMITRIPTYLINE TABLET 10 MG [Concomitant]
     Dates: start: 20171013
  4. OXYCODONE TABLET 5MG [Concomitant]
     Dates: start: 20190427, end: 20190504
  5. CARVEDILOL TABLET 12.5 MG [Concomitant]
     Dates: start: 20180830
  6. LEVOTHYROXINE 75 MCG [Concomitant]
     Dates: start: 20171024
  7. SENSIPAR [Suspect]
     Active Substance: CINACALCET HYDROCHLORIDE
     Indication: HYPERPARATHYROIDISM
     Route: 048
     Dates: start: 20181026
  8. LOSARTAN TABLETS 100 MG [Concomitant]
     Dates: start: 20190426
  9. NIFEDIPINE TABLET 60 MG ER [Concomitant]
     Dates: start: 20171128

REACTIONS (1)
  - Hepatic failure [None]

NARRATIVE: CASE EVENT DATE: 20190506
